FAERS Safety Report 10019363 (Version 1)
Quarter: 2014Q1

REPORT INFORMATION
  Report Type: Spontaneous
  Country: US (occurrence: US)
  Receive Date: 20140318
  Receipt Date: 20140318
  Transmission Date: 20141002
  Serious: Yes (Hospitalization, Other)
  Sender: FDA-Public Use
  Company Number: US-ELI_LILLY_AND_COMPANY-US201403002653

PATIENT
  Age: 76 Year
  Sex: Male

DRUGS (7)
  1. EFFIENT [Suspect]
     Indication: MYOCARDIAL INFARCTION
     Dosage: 10 MG, UNKNOWN
     Dates: start: 20120701
  2. ASPIRIN [Concomitant]
     Dosage: 325 MG, UNKNOWN
  3. ATORVASTATIN [Concomitant]
     Indication: BLOOD CHOLESTEROL
  4. FENOFIBRATE [Concomitant]
  5. AMLODIPINE [Concomitant]
  6. LISINOPRIL [Concomitant]
  7. METOPROLOL [Concomitant]

REACTIONS (6)
  - Ulcer [Recovered/Resolved]
  - Melaena [Recovered/Resolved]
  - Melaena [Recovered/Resolved]
  - Diarrhoea [Unknown]
  - Retching [Recovered/Resolved]
  - Arthralgia [Recovered/Resolved]
